FAERS Safety Report 4914985-8 (Version None)
Quarter: 2006Q1

REPORT INFORMATION
  Report Type: 
  Country: None (occurrence: None)
  Receive Date: 20060217
  Receipt Date: 20060123
  Transmission Date: 20060701
  Serious: Yes (Hospitalization)
  Sender: FDA-Public Use
  Company Number: US-AMGEN-US166069

PATIENT
  Sex: Male

DRUGS (3)
  1. NEULASTA [Suspect]
     Indication: CHEMOTHERAPY
     Route: 058
     Dates: start: 20051209, end: 20060120
  2. CARBOPLATIN [Concomitant]
     Dates: start: 20051115
  3. VP-16 [Concomitant]
     Dates: start: 20051115

REACTIONS (3)
  - DRUG INEFFECTIVE [None]
  - FEBRILE NEUTROPENIA [None]
  - WHITE BLOOD CELL COUNT DECREASED [None]
